FAERS Safety Report 6552001-5 (Version None)
Quarter: 2010Q1

REPORT INFORMATION
  Report Type: 
  Country: None (occurrence: None)
  Receive Date: 20100120
  Receipt Date: 20100105
  Transmission Date: 20100710
  Serious: Yes (Other)
  Sender: FDA-Public Use
  Company Number: 8053310

PATIENT
  Sex: Male
  Weight: 130 kg

DRUGS (4)
  1. CERTOLIZUMAB PEGOL [Suspect]
     Indication: CROHN'S DISEASE
     Dosage: (400 MG 1X/2 WEEKS SUBCUTANEOUS), (400 MG 1X/MONTH, DOSE FREQ.:ONCE MONTHLY-NR OF DOSES :64 SUB.)
     Route: 058
     Dates: start: 20040909, end: 20041008
  2. CERTOLIZUMAB PEGOL [Suspect]
     Indication: CROHN'S DISEASE
     Dosage: (400 MG 1X/2 WEEKS SUBCUTANEOUS), (400 MG 1X/MONTH, DOSE FREQ.:ONCE MONTHLY-NR OF DOSES :64 SUB.)
     Route: 058
     Dates: start: 20050316
  3. CYMEVEN [Concomitant]
  4. METROGEL [Concomitant]

REACTIONS (1)
  - SQUAMOUS CELL CARCINOMA [None]
